FAERS Safety Report 5953625-6 (Version None)
Quarter: 2008Q4

REPORT INFORMATION
  Report Type: 
  Country: None (occurrence: None)
  Receive Date: 20081114
  Receipt Date: 20081111
  Transmission Date: 20090506
  Serious: Yes (Other)
  Sender: FDA-Public Use
  Company Number: B0540207A

PATIENT
  Age: 66 Year
  Sex: Male

DRUGS (10)
  1. ARIXTRA [Suspect]
     Indication: THROMBOSIS PROPHYLAXIS
     Dosage: 2.5MG PER DAY
     Route: 058
     Dates: start: 20080904, end: 20080912
  2. LORCAM [Concomitant]
     Dosage: 12MG PER DAY
     Route: 048
     Dates: start: 20080828
  3. MUCOSTA [Concomitant]
     Dosage: 300MG PER DAY
     Route: 048
     Dates: start: 20080828
  4. SERENACE [Concomitant]
     Dosage: 1.5MG PER DAY
     Route: 048
     Dates: start: 20080831
  5. DIAZEPAM [Concomitant]
     Dosage: 2MG THREE TIMES PER DAY
     Route: 048
     Dates: start: 20080831
  6. DASEN [Concomitant]
     Dosage: 15MG PER DAY
     Route: 048
     Dates: start: 20080828, end: 20080910
  7. LENDORMIN [Concomitant]
     Dosage: .25MG PER DAY
     Route: 048
  8. PENTCILLIN [Concomitant]
     Dosage: 2G PER DAY
     Route: 042
     Dates: start: 20080903, end: 20080904
  9. BLOPRESS [Concomitant]
     Route: 048
  10. ADALAT CC [Concomitant]
     Route: 048

REACTIONS (1)
  - PLATELET COUNT INCREASED [None]
